FAERS Safety Report 23749159 (Version 1)
Quarter: 2024Q2

REPORT INFORMATION
  Report Type: Report from Study
  Country: RO (occurrence: RO)
  Receive Date: 20240416
  Receipt Date: 20240416
  Transmission Date: 20240716
  Serious: Yes (Hospitalization)
  Sender: FDA-Public Use
  Company Number: RO-AMRYT PHARMACEUTICALS DAC-AEGR007037

PATIENT

DRUGS (1)
  1. METRELEPTIN [Suspect]
     Active Substance: METRELEPTIN
     Indication: Product used for unknown indication
     Dosage: UNK

REACTIONS (1)
  - Hypertriglyceridaemia [Unknown]
